FAERS Safety Report 21491325 (Version 2)
Quarter: 2022Q4

REPORT INFORMATION
  Report Type: Spontaneous
  Country: US (occurrence: US)
  Receive Date: 20221021
  Receipt Date: 20221122
  Transmission Date: 20230113
  Serious: Yes (Other)
  Sender: FDA-Public Use
  Company Number: US-BRISTOL-MYERS SQUIBB COMPANY-2022-124833

PATIENT
  Age: 72 Year
  Sex: Male
  Weight: 72.121 kg

DRUGS (1)
  1. LENALIDOMIDE [Suspect]
     Active Substance: LENALIDOMIDE
     Indication: Plasma cell myeloma
     Dosage: DAILY DAYS 1-28 EVERY 28 DAYS
     Route: 048
     Dates: start: 20220928

REACTIONS (8)
  - Red blood cell count decreased [Unknown]
  - Platelet count decreased [Recovering/Resolving]
  - Blood immunoglobulin G decreased [Not Recovered/Not Resolved]
  - Neuropathy peripheral [Not Recovered/Not Resolved]
  - Arrhythmia [Not Recovered/Not Resolved]
  - Anaemia [Recovering/Resolving]
  - Diarrhoea [Not Recovered/Not Resolved]
  - Blood pressure fluctuation [Not Recovered/Not Resolved]
